FAERS Safety Report 12870695 (Version 1)
Quarter: 2016Q4

REPORT INFORMATION
  Report Type: Spontaneous
  Country: FR (occurrence: FR)
  Receive Date: 20161021
  Receipt Date: 20161021
  Transmission Date: 20170207
  Serious: Yes (Hospitalization)
  Sender: FDA-Public Use
  Company Number: FR-SA-2016SA188586

PATIENT
  Age: 88 Year
  Sex: Female

DRUGS (11)
  1. BISOPROLOL FUMARATE. [Suspect]
     Active Substance: BISOPROLOL FUMARATE
     Route: 048
     Dates: start: 201608
  2. CORTANCYL [Suspect]
     Active Substance: PREDNISONE
     Indication: INTERSTITIAL LUNG DISEASE
     Route: 048
  3. PREVISCAN [Concomitant]
     Active Substance: FLUINDIONE
  4. DIFFU K [Concomitant]
     Active Substance: POTASSIUM CHLORIDE
  5. LACRIFLUID [Concomitant]
     Active Substance: CARBOMER
  6. PARACETAMOL [Concomitant]
     Active Substance: ACETAMINOPHEN
  7. LASILIX [Concomitant]
     Active Substance: FUROSEMIDE
  8. APROVEL [Suspect]
     Active Substance: IRBESARTAN
     Indication: HYPERTENSION
     Route: 048
     Dates: start: 201608
  9. IMOVANE [Concomitant]
     Active Substance: ZOPICLONE
  10. PANTOPRAZOLE [Suspect]
     Active Substance: PANTOPRAZOLE SODIUM
     Route: 048
     Dates: start: 201608
  11. MACROGOL [Concomitant]
     Active Substance: POLYETHYLENE GLYCOLS

REACTIONS (2)
  - Purpura [Not Recovered/Not Resolved]
  - Ecchymosis [Not Recovered/Not Resolved]

NARRATIVE: CASE EVENT DATE: 201608
